FAERS Safety Report 18588865 (Version 1)
Quarter: 2020Q4

REPORT INFORMATION
  Report Type: Report from Study
  Country: None (occurrence: US)
  Receive Date: 20201207
  Receipt Date: 20201207
  Transmission Date: 20210114
  Serious: Yes (Hospitalization)
  Sender: FDA-Public Use
  Company Number: US-ABBVIE-19K-163-2811257-00

PATIENT
  Sex: Male

DRUGS (1)
  1. HUMIRA [Suspect]
     Active Substance: ADALIMUMAB
     Indication: PRODUCT USED FOR UNKNOWN INDICATION
     Dosage: CITRATE FREE
     Route: 058
     Dates: start: 2019, end: 2019

REACTIONS (9)
  - Loss of consciousness [Recovered/Resolved]
  - Influenza like illness [Unknown]
  - Vomiting [Unknown]
  - Hypertension [Recovered/Resolved]
  - Pyrexia [Unknown]
  - Dehydration [Unknown]
  - Injection site pain [Unknown]
  - Diarrhoea [Unknown]
  - Fall [Unknown]

NARRATIVE: CASE EVENT DATE: 2019
